FAERS Safety Report 14514246 (Version 2)
Quarter: 2018Q1

REPORT INFORMATION
  Report Type: Spontaneous
  Country: GR (occurrence: GR)
  Receive Date: 20180209
  Receipt Date: 20180222
  Transmission Date: 20180509
  Serious: Yes (Hospitalization)
  Sender: FDA-Public Use
  Company Number: GR-ELI_LILLY_AND_COMPANY-GR201802000131

PATIENT
  Age: 53 Year
  Sex: Female

DRUGS (1)
  1. ZYPADHERA [Suspect]
     Active Substance: OLANZAPINE PAMOATE
     Indication: SCHIZOPHRENIA
     Dosage: 405 MG, MONTHLY (1/M)
     Route: 030
     Dates: start: 2017

REACTIONS (8)
  - Post-injection delirium sedation syndrome [Recovered/Resolved]
  - Blood pressure systolic decreased [Recovered/Resolved]
  - Gait inability [Recovered/Resolved]
  - Blood glucose increased [Recovered/Resolved]
  - Drug level above therapeutic [Recovered/Resolved]
  - Depressed level of consciousness [Recovered/Resolved]
  - Muscle spasms [Recovered/Resolved]
  - Aphasia [Recovered/Resolved]

NARRATIVE: CASE EVENT DATE: 201712
